FAERS Safety Report 19397629 (Version 1)
Quarter: 2021Q2

REPORT INFORMATION
  Report Type: Report from Study
  Country: None (occurrence: CA)
  Receive Date: 20210609
  Receipt Date: 20210609
  Transmission Date: 20210717
  Serious: Yes (Death, Hospitalization)
  Sender: FDA-Public Use
  Company Number: CA-ABBVIE-21K-028-3938486-00

PATIENT
  Sex: Female

DRUGS (1)
  1. MAVIRET [Suspect]
     Active Substance: GLECAPREVIR\PIBRENTASVIR
     Indication: PRODUCT USED FOR UNKNOWN INDICATION
     Route: 048
     Dates: start: 20210316, end: 20210511

REACTIONS (15)
  - Hepatic failure [Fatal]
  - Muscular weakness [Unknown]
  - Hypersomnia [Unknown]
  - Contusion [Unknown]
  - Nausea [Unknown]
  - Asthenia [Unknown]
  - Renal failure [Fatal]
  - Musculoskeletal disorder [Unknown]
  - Dizziness [Unknown]
  - Hypophagia [Unknown]
  - General physical health deterioration [Unknown]
  - Decreased appetite [Unknown]
  - Headache [Unknown]
  - Fall [Unknown]
  - Gait disturbance [Unknown]
